FAERS Safety Report 11135696 (Version 5)
Quarter: 2015Q3

REPORT INFORMATION
  Report Type: Spontaneous
  Country: SE (occurrence: SE)
  Receive Date: 20150526
  Receipt Date: 20150908
  Transmission Date: 20151125
  Serious: Yes (Hospitalization, Other)
  Sender: FDA-Public Use
  Company Number: SE-PFIZER INC-2015169482

PATIENT
  Age: 55 Year
  Sex: Female

DRUGS (7)
  1. SELOKEN [Concomitant]
     Active Substance: METOPROLOL
     Dosage: UNK
  2. CLARITIN [Concomitant]
     Active Substance: LORATADINE
     Dosage: UNK
  3. SALAZOPYRIN [Suspect]
     Active Substance: SULFASALAZINE
     Indication: PSORIATIC ARTHROPATHY
     Dosage: 1000 MG, DAILY
     Route: 048
     Dates: start: 20150420, end: 20150515
  4. SALAZOPYRIN [Suspect]
     Active Substance: SULFASALAZINE
     Dosage: UNK
     Dates: start: 1995
  5. LOSARTAN. [Concomitant]
     Active Substance: LOSARTAN
     Dosage: UNK
  6. SALAZOPYRIN [Suspect]
     Active Substance: SULFASALAZINE
     Indication: GASTROINTESTINAL DISORDER
     Dosage: 2000 MG, DAILY
     Route: 048
     Dates: end: 20150515
  7. ENTOCORT [Concomitant]
     Active Substance: BUDESONIDE
     Dosage: 3MG, DAILY (UP TO 6 MG A DAY)

REACTIONS (16)
  - Feeling cold [Recovered/Resolved]
  - Oral pain [Recovered/Resolved]
  - Chills [Recovered/Resolved]
  - Ageusia [Recovered/Resolved]
  - Oral mucosal eruption [Recovered/Resolved]
  - Pyrexia [Recovered/Resolved]
  - Rash pruritic [Recovered/Resolved]
  - Depressed mood [Recovered/Resolved]
  - Cough [Recovered/Resolved]
  - Rash [Unknown]
  - Anaphylactic shock [Recovered/Resolved]
  - Nausea [Recovered/Resolved]
  - Dry skin [Recovered/Resolved]
  - Swelling [Recovered/Resolved]
  - Rash generalised [Recovered/Resolved]
  - Anosmia [Recovered/Resolved]

NARRATIVE: CASE EVENT DATE: 20150425
